FAERS Safety Report 22284292 (Version 1)
Quarter: 2023Q2

REPORT INFORMATION
  Report Type: Spontaneous
  Country: US (occurrence: US)
  Receive Date: 20230504
  Receipt Date: 20230504
  Transmission Date: 20230722
  Serious: Yes (Other)
  Sender: FDA-Public Use
  Company Number: US-BAYER-2023A057952

PATIENT
  Age: 70 Year
  Sex: Male

DRUGS (1)
  1. ASPIRIN [Interacting]
     Active Substance: ASPIRIN

REACTIONS (5)
  - Haematuria [None]
  - Labelled drug-drug interaction medication error [None]
  - Oliguria [None]
  - Abdominal pain [None]
  - Blood creatinine increased [None]
